FAERS Safety Report 10702174 (Version 1)
Quarter: 2015Q1

REPORT INFORMATION
  Report Type: Spontaneous
  Country: US (occurrence: US)
  Receive Date: 20150109
  Receipt Date: 20150109
  Transmission Date: 20150721
  Serious: Yes (Other)
  Sender: FDA-Public Use
  Company Number: US-PFIZER INC-2015007021

PATIENT
  Age: 57 Year
  Sex: Female

DRUGS (1)
  1. LYRICA [Suspect]
     Active Substance: PREGABALIN
     Dosage: UNK

REACTIONS (5)
  - Rhinalgia [Not Recovered/Not Resolved]
  - Dry eye [Unknown]
  - Cataract [Unknown]
  - Eye pain [Not Recovered/Not Resolved]
  - Fibromyalgia [Unknown]
